FAERS Safety Report 4768855-9 (Version None)
Quarter: 2005Q3

REPORT INFORMATION
  Report Type: 
  Country: None (occurrence: None)
  Receive Date: 20050914
  Receipt Date: 20050412
  Transmission Date: 20060218
  Serious: Yes (Hospitalization)
  Sender: FDA-Public Use
  Company Number: US-MERCK-0504USA01850

PATIENT
  Age: 65 Year
  Sex: Female

DRUGS (13)
  1. PREVACID [Concomitant]
     Indication: DYSPEPSIA
     Route: 065
  2. ALLEGRA [Concomitant]
     Route: 065
  3. DESOWEN [Concomitant]
     Route: 065
  4. ZYRTEC-D 12 HOUR [Concomitant]
     Route: 065
  5. PREMARIN [Concomitant]
     Indication: HORMONE REPLACEMENT THERAPY
     Route: 065
     Dates: start: 19990101, end: 20040201
  6. MECLIZINE [Concomitant]
     Route: 065
  7. TRIMOX [Concomitant]
     Route: 065
  8. NITROSTAT [Concomitant]
     Route: 065
  9. FLONASE [Concomitant]
     Route: 065
  10. METHYLPREDNISOLONE [Concomitant]
     Route: 065
  11. CEPHALEXIN [Concomitant]
     Route: 065
  12. DENAVIR [Concomitant]
     Route: 065
  13. VIOXX [Suspect]
     Indication: ARTHRITIS
     Route: 048
     Dates: start: 20001221, end: 20040901

REACTIONS (6)
  - ANGINA PECTORIS [None]
  - ATHEROSCLEROSIS [None]
  - CHEST PAIN [None]
  - DYSPEPSIA [None]
  - HYPERTENSION [None]
  - MYOCARDIAL INFARCTION [None]
